FAERS Safety Report 26120970 (Version 1)
Quarter: 2025Q4

REPORT INFORMATION
  Report Type: Spontaneous
  Country: EU (occurrence: EU)
  Receive Date: 20251204
  Receipt Date: 20251204
  Transmission Date: 20260118
  Serious: Yes (Hospitalization, Other)
  Sender: CHEPLAPHARM
  Company Number: None

PATIENT
  Age: 24 Year
  Sex: Male
  Weight: 97 kg

DRUGS (4)
  1. OLANZAPINE PAMOATE [Suspect]
     Active Substance: OLANZAPINE PAMOATE
     Indication: Schizophrenia
     Dosage: 1 INJECTION EVERY 15 DAYS, ALTERNATING BETWEEN 300 MG AND 405 MG INJECTIONS (INTRODUCED AS A REPL...
     Route: 030
     Dates: start: 202508
  2. OLANZAPINE PAMOATE [Suspect]
     Active Substance: OLANZAPINE PAMOATE
     Indication: Schizophrenia
     Route: 030
     Dates: start: 20251010
  3. OLANZAPINE [Suspect]
     Active Substance: OLANZAPINE
     Route: 048
  4. LORAZEPAM [Concomitant]
     Active Substance: LORAZEPAM

REACTIONS (4)
  - Pulmonary embolism [Recovering/Resolving]
  - Multisystem inflammatory syndrome [Unknown]
  - Pulmonary infarction [Unknown]
  - Treatment noncompliance [Unknown]

NARRATIVE: CASE EVENT DATE: 20251023
